FAERS Safety Report 4548401-5 (Version None)
Quarter: 2004Q4

REPORT INFORMATION
  Report Type: 
  Country: None (occurrence: None)
  Receive Date: 20041227
  Receipt Date: 20041004
  Transmission Date: 20050328
  Serious: Yes (Hospitalization)
  Sender: FDA-Public Use
  Company Number: 04P-163-0276017-00

PATIENT
  Age: 56 Year
  Sex: Female
  Weight: 100.6985 kg

DRUGS (7)
  1. HUMIRA [Suspect]
     Indication: RHEUMATOID ARTHRITIS
     Dosage: 40 MG, 1 IN 2 WK, SUBCUTANEOUS
     Route: 058
     Dates: start: 20040727
  2. FEXOFENADINE HYDROCHLORIDE [Concomitant]
  3. VALSARTAN [Concomitant]
  4. PREDNISONE [Concomitant]
  5. MONTELUKAST SODIUM [Concomitant]
  6. TOPIRAMATE [Concomitant]
  7. LANSOPRAZOLE [Concomitant]

REACTIONS (8)
  - AMNESIA [None]
  - DISORIENTATION [None]
  - DYSPNOEA [None]
  - ELECTROCARDIOGRAM ABNORMAL [None]
  - MIOSIS [None]
  - SOMNOLENCE [None]
  - UNEVALUABLE EVENT [None]
  - VOMITING [None]
